FAERS Safety Report 10466466 (Version 1)
Quarter: 2014Q3

REPORT INFORMATION
  Report Type: Report from Study
  Country: US (occurrence: US)
  Receive Date: 20140922
  Receipt Date: 20140922
  Transmission Date: 20150326
  Serious: Yes (Other)
  Sender: FDA-Public Use
  Company Number: PHEH2014US018350

PATIENT
  Sex: Male

DRUGS (4)
  1. SANDOSTATIN LAR DEPOT [Suspect]
     Active Substance: OCTREOTIDE ACETATE
     Indication: NEUROENDOCRINE TUMOUR
     Dosage: 30 MG, QMO
     Route: 042
  2. YTTRIUM [Concomitant]
     Active Substance: YTTRIUM Y-90
     Dates: start: 2013
  3. YTTRIUM [Concomitant]
     Active Substance: YTTRIUM Y-90
     Dates: start: 2011
  4. YTTRIUM [Concomitant]
     Active Substance: YTTRIUM Y-90
     Dates: start: 2013

REACTIONS (6)
  - Second primary malignancy [Unknown]
  - Coronary artery disease [Unknown]
  - Carcinoid heart disease [Unknown]
  - Neck injury [Unknown]
  - Deafness [Unknown]
  - Prostate cancer stage II [Unknown]

NARRATIVE: CASE EVENT DATE: 2007
